FAERS Safety Report 22593703 (Version 2)
Quarter: 2024Q2

REPORT INFORMATION
  Report Type: Report from Study
  Country: US (occurrence: US)
  Receive Date: 20230613
  Receipt Date: 20240618
  Transmission Date: 20240716
  Serious: Yes (Other)
  Sender: FDA-Public Use
  Company Number: US-002147023-NVSC2023US131282

PATIENT
  Sex: Female

DRUGS (1)
  1. SCEMBLIX [Suspect]
     Active Substance: ASCIMINIB HYDROCHLORIDE
     Indication: Product used for unknown indication
     Dosage: 40 MG, BID
     Route: 048

REACTIONS (6)
  - Tardive dyskinesia [Unknown]
  - Macular degeneration [Unknown]
  - Leukaemia [Unknown]
  - Pain in jaw [Unknown]
  - Eye disorder [Unknown]
  - Incorrect dose administered [Unknown]
